FAERS Safety Report 18043742 (Version 1)
Quarter: 2020Q3

REPORT INFORMATION
  Report Type: Spontaneous
  Country: US (occurrence: US)
  Receive Date: 20200718
  Receipt Date: 20200718
  Transmission Date: 20201103
  Serious: Yes (Other)
  Sender: FDA-Public Use
  Company Number: None

PATIENT
  Age: 52 Year
  Sex: Female
  Weight: 109.8 kg

DRUGS (9)
  1. LISINOPRIL. [Concomitant]
     Active Substance: LISINOPRIL
  2. VIATIAM E [Concomitant]
  3. VICTOZA [Concomitant]
     Active Substance: LIRAGLUTIDE
  4. AMITRIPTYLINE [Concomitant]
     Active Substance: AMITRIPTYLINE
  5. ESZOPICLONE. [Concomitant]
     Active Substance: ESZOPICLONE
  6. AIMOVIG [Suspect]
     Active Substance: ERENUMAB-AOOE
     Indication: MIGRAINE
     Dosage: ?          QUANTITY:30 INJECTION(S);OTHER FREQUENCY:ONCE MONTHLY;?
     Route: 058
  7. BIOTIN [Concomitant]
     Active Substance: BIOTIN
  8. ESTROVEN [Concomitant]
     Active Substance: DIETARY SUPPLEMENT
  9. CALCIUM [Concomitant]
     Active Substance: CALCIUM

REACTIONS (4)
  - Pruritus [None]
  - Rash pruritic [None]
  - Alopecia [None]
  - Rash [None]

NARRATIVE: CASE EVENT DATE: 20200627
